FAERS Safety Report 9995147 (Version 1)
Quarter: 2014Q1

REPORT INFORMATION
  Report Type: Spontaneous
  Country: US (occurrence: None)
  Receive Date: 20140214
  Receipt Date: 20140214
  Transmission Date: 20141002
  Serious: Yes (Other)
  Sender: FDA-Public Use
  Company Number: US-014098

PATIENT
  Age: 19 Year
  Sex: Female
  Weight: 58.97 kg

DRUGS (1)
  1. PICO-SALAX (NOT SPECIFIED) [Suspect]
     Indication: BOWEL PREPARATION
     Dosage: FIRST DOSE: 17 DEC 2013 AT 6:00 PM, SECOND DOSE: 18 DEC 2013 AT 4:00 AM)
     Dates: start: 20131217, end: 20131218

REACTIONS (1)
  - Drug ineffective [None]
